FAERS Safety Report 5528033-2 (Version None)
Quarter: 2007Q4

REPORT INFORMATION
  Report Type: 
  Country: None (occurrence: None)
  Receive Date: 20071128
  Receipt Date: 20071119
  Transmission Date: 20080405
  Serious: Yes (Death, Hospitalization)
  Sender: FDA-Public Use
  Company Number: NL-PURDUE-GBR_2007_0003491

PATIENT
  Age: 48 Year
  Sex: Female

DRUGS (3)
  1. OXYCONTIN [Suspect]
     Indication: DRUG USE FOR UNKNOWN INDICATION
     Dosage: 5 MG, BID
     Route: 065
     Dates: start: 20041215, end: 20050103
  2. IMURAN [Concomitant]
     Indication: CROHN'S DISEASE
     Route: 065
  3. SALOFALK ^THAMES^ [Concomitant]
     Indication: CROHN'S DISEASE
     Route: 065

REACTIONS (2)
  - DEATH [None]
  - HOSPITALISATION [None]
